FAERS Safety Report 14085414 (Version 3)
Quarter: 2018Q3

REPORT INFORMATION
  Report Type: Report from Study
  Country: MX (occurrence: MX)
  Receive Date: 20171013
  Receipt Date: 20180831
  Transmission Date: 20181010
  Serious: Yes (Hospitalization, Other)
  Sender: FDA-Public Use
  Company Number: PHHY2017MX150343

PATIENT
  Age: 83 Year
  Sex: Female

DRUGS (5)
  1. ENTRESTO [Suspect]
     Active Substance: SACUBITRIL\VALSARTAN
     Dosage: UNK
  2. DIGOXIN. [Suspect]
     Active Substance: DIGOXIN
     Dosage: UNK
  3. ENTRESTO [Suspect]
     Active Substance: SACUBITRIL\VALSARTAN
     Dosage: 50 MG (24 MG SACUBITRIL AND 26 MG VALSARTAN), QD
     Route: 065
     Dates: start: 2017
  4. DIGOXIN. [Suspect]
     Active Substance: DIGOXIN
     Indication: PRODUCT USED FOR UNKNOWN INDICATION
     Dosage: UNK
     Route: 065
  5. ENTRESTO [Suspect]
     Active Substance: SACUBITRIL\VALSARTAN
     Indication: ARRHYTHMIA
     Dosage: 50 MG (24 MG SACUBITRIL AND 26 MG VALSARTAN), QD
     Route: 065
     Dates: start: 2016, end: 2017

REACTIONS (7)
  - Renal failure [Recovered/Resolved]
  - Hepatic amoebiasis [Recovering/Resolving]
  - Mobility decreased [Unknown]
  - Product use in unapproved indication [Unknown]
  - Prescribed underdose [Unknown]
  - Loss of personal independence in daily activities [Unknown]
  - Inappropriate schedule of drug administration [Unknown]

NARRATIVE: CASE EVENT DATE: 201611
